FAERS Safety Report 6086136-0 (Version None)
Quarter: 2009Q1

REPORT INFORMATION
  Report Type: 
  Country: None (occurrence: None)
  Receive Date: 20090217
  Receipt Date: 20090217
  Transmission Date: 20090719
  Serious: Yes (Other)
  Sender: FDA-Public Use
  Company Number: None

PATIENT
  Age: 40 Year
  Sex: Female
  Weight: 70.3075 kg

DRUGS (1)
  1. GEODON [Suspect]
     Indication: BIPOLAR DISORDER
     Dosage: 360 MG ONE TIME A DAY
     Dates: start: 20081001, end: 20090201

REACTIONS (3)
  - ANXIETY [None]
  - SELF-MEDICATION [None]
  - THINKING ABNORMAL [None]
